FAERS Safety Report 23242003 (Version 1)
Quarter: 2023Q4

REPORT INFORMATION
  Report Type: Spontaneous
  Country: IT (occurrence: IT)
  Receive Date: 20231129
  Receipt Date: 20231129
  Transmission Date: 20240109
  Serious: Yes (Other)
  Sender: FDA-Public Use
  Company Number: IT-MYLANLABS-2023M1125770

PATIENT
  Age: 45 Year
  Sex: Female

DRUGS (3)
  1. PACLITAXEL [Suspect]
     Active Substance: PACLITAXEL
     Indication: Triple negative breast cancer
     Dosage: 90 MILLIGRAM/SQ. METER, CYCLE, SCHEDULED ON DAYS 1, 8 AND 15 EVERY 28 DAYS (RECEIVED?..
     Route: 065
     Dates: start: 201807
  2. IERAMILIMAB [Suspect]
     Active Substance: IERAMILIMAB
     Indication: Triple negative breast cancer
     Dosage: 400 MILLIGRAM, CYCLE, DOSAGE: EVERY 21 DAYS; SCHEDULED FOR 17 CYCLES
     Route: 042
  3. CARBOPLATIN [Suspect]
     Active Substance: CARBOPLATIN
     Indication: Triple negative breast cancer
     Dosage: UNK, CYCLE, INTRAVENOUS INFUSION, DOSAGE: AUC 6 EVERY 21 DAYS; SCHEDULED FOR 17 CYCLES
     Route: 042

REACTIONS (2)
  - Disease progression [Unknown]
  - Drug ineffective [Unknown]
